FAERS Safety Report 8789507 (Version 1)
Quarter: 2012Q4

REPORT INFORMATION
  Report Type: Spontaneous
  Country: US (occurrence: None)
  Receive Date: 20120906
  Receipt Date: 20120906
  Transmission Date: 20130627
  Serious: Yes (Other)
  Sender: FDA-Public Use
  Company Number: AXC-2012-000397

PATIENT
  Sex: Female

DRUGS (2)
  1. MESALAMINE [Suspect]
     Indication: ULCERATIVE COLITIS
  2. PREDNISONE [Suspect]
     Indication: ULCERATIVE COLITIS
     Dosage: tapering

REACTIONS (1)
  - Pericardial effusion [None]
